FAERS Safety Report 8332045-3 (Version None)
Quarter: 2012Q2

REPORT INFORMATION
  Report Type: 
  Country: None (occurrence: None)
  Receive Date: 20120502
  Receipt Date: 20120425
  Transmission Date: 20120825
  Serious: Yes (Hospitalization, Disabling, Other)
  Sender: FDA-Public Use
  Company Number: US-MERCK-1112USA02858

PATIENT
  Age: 53 Year
  Sex: Female
  Weight: 78 kg

DRUGS (15)
  1. FOSAMAX [Suspect]
     Indication: OSTEOPENIA
     Route: 048
     Dates: start: 19990101, end: 20080201
  2. ZEBETA [Concomitant]
     Indication: HYPERTENSION
     Route: 065
     Dates: start: 20070101
  3. FOSAMAX [Suspect]
     Route: 048
  4. FOSAMAX [Suspect]
     Route: 048
     Dates: start: 20100901
  5. ALENDRONATE SODIUM [Suspect]
     Indication: OSTEOPOROSIS
     Route: 048
     Dates: start: 20080301, end: 20100901
  6. ALENDRONATE SODIUM [Suspect]
     Indication: OSTEOPENIA
     Route: 048
     Dates: start: 20080301, end: 20100901
  7. CALCIUM (UNSPECIFIED) [Concomitant]
     Route: 065
  8. POTASSIUM CHLORIDE [Concomitant]
     Indication: HYPERTENSION
     Route: 065
     Dates: start: 20020101
  9. FOSAMAX [Suspect]
     Indication: OSTEOPOROSIS
     Route: 048
     Dates: start: 19990101, end: 20080201
  10. FOSAMAX [Suspect]
     Route: 048
     Dates: start: 20100901
  11. FOSAMAX [Suspect]
     Route: 048
  12. ASCORBIC ACID [Concomitant]
     Route: 065
  13. VITAMIN D (UNSPECIFIED) [Concomitant]
     Route: 065
  14. CARTIA XT [Concomitant]
     Indication: HYPERTENSION
     Route: 065
     Dates: start: 19870101
  15. HYDROCHLOROTHIAZIDE [Concomitant]
     Indication: HYPERTENSION
     Route: 065
     Dates: start: 20020101

REACTIONS (20)
  - HYPERLIPIDAEMIA [None]
  - DRUG ABUSE [None]
  - FALL [None]
  - LIGAMENT SPRAIN [None]
  - BLOOD DISORDER [None]
  - LOW TURNOVER OSTEOPATHY [None]
  - COLONIC POLYP [None]
  - IRRITABLE BOWEL SYNDROME [None]
  - FEMUR FRACTURE [None]
  - ANAEMIA POSTOPERATIVE [None]
  - OSTEOARTHRITIS [None]
  - URINARY TRACT INFECTION [None]
  - RECTAL HAEMORRHAGE [None]
  - ANGINA PECTORIS [None]
  - ROTATOR CUFF SYNDROME [None]
  - ARTHRITIS [None]
  - HAEMORRHOIDS [None]
  - TOOTH DISORDER [None]
  - FOOT DEFORMITY [None]
  - HAND FRACTURE [None]
